FAERS Safety Report 4664906-0 (Version None)
Quarter: 2005Q2

REPORT INFORMATION
  Report Type: 
  Country: None (occurrence: None)
  Receive Date: 20050517
  Receipt Date: 20050510
  Transmission Date: 20051028
  Serious: Yes (Death, Hospitalization)
  Sender: FDA-Public Use
  Company Number: 2005-128107-NL

PATIENT
  Age: 74 Year
  Sex: Male

DRUGS (13)
  1. DEXAMETHASONE [Suspect]
     Indication: PROSTATE CANCER
     Dosage: 2 MG QD
     Route: 048
     Dates: start: 20041110
  2. ZOLEDRONIC ACID [Suspect]
     Indication: PROSTATE CANCER
     Route: 042
     Dates: start: 20041110
  3. ADCAL-D3 [Concomitant]
  4. ACETYLSALICYLIC ACID [Concomitant]
  5. ATENOLOL [Concomitant]
  6. ATORVASTATIN CALCIUM [Concomitant]
  7. BENDROFLUAZIDE [Concomitant]
  8. IRBESARTAN [Concomitant]
  9. LANSOPRAZOLE [Concomitant]
  10. METRONIDAZOLE [Concomitant]
  11. CHLOROXINE [Concomitant]
  12. MELOXICAM [Concomitant]
  13. VITAMIN D [Concomitant]

REACTIONS (9)
  - ASTHENIA [None]
  - BLOOD CALCIUM DECREASED [None]
  - CONSTIPATION [None]
  - DIVERTICULAR PERFORATION [None]
  - HYPOTENSION [None]
  - PERITONITIS [None]
  - RENAL FAILURE ACUTE [None]
  - SEPSIS [None]
  - URINARY RETENTION [None]
